FAERS Safety Report 9841952 (Version 1)
Quarter: 2014Q1

REPORT INFORMATION
  Report Type: Spontaneous
  Country: CH (occurrence: CH)
  Receive Date: 20140124
  Receipt Date: 20140124
  Transmission Date: 20141002
  Serious: Yes (Other)
  Sender: FDA-Public Use
  Company Number: CH-ASTRAZENECA-2014SE03942

PATIENT
  Age: 61 Year
  Sex: Male

DRUGS (4)
  1. NAROPIN [Suspect]
     Indication: NECK PAIN
     Route: 053
     Dates: start: 20131121, end: 20131121
  2. IOPAMIDOL [Suspect]
     Indication: NECK PAIN
     Route: 053
     Dates: start: 20131121, end: 20131121
  3. KENACORT [Suspect]
     Indication: NECK PAIN
     Route: 053
     Dates: start: 20131121, end: 20131121
  4. NOVALGIN [Concomitant]
     Indication: NECK PAIN

REACTIONS (10)
  - Presyncope [Recovered/Resolved]
  - Hyperhidrosis [Recovered/Resolved]
  - Apathy [Recovered/Resolved]
  - Fear of death [Recovered/Resolved]
  - Chest discomfort [Unknown]
  - Prolonged expiration [Unknown]
  - Hypersensitivity [Recovered/Resolved]
  - Nausea [Recovered/Resolved]
  - Dizziness [Recovered/Resolved]
  - Dyspnoea [Recovered/Resolved]
